FAERS Safety Report 6317041-X (Version None)
Quarter: 2009Q3

REPORT INFORMATION
  Report Type: 
  Country: None (occurrence: None)
  Receive Date: 20090820
  Receipt Date: 20090812
  Transmission Date: 20100115
  Serious: Yes (Hospitalization)
  Sender: FDA-Public Use
  Company Number: US-AMGEN-QUU359983

PATIENT
  Sex: Female

DRUGS (1)
  1. ENBREL [Suspect]
     Indication: PSORIATIC ARTHROPATHY
     Route: 058
     Dates: start: 20040515

REACTIONS (4)
  - ASTHENIA [None]
  - CORONARY ARTERY DISEASE [None]
  - FATIGUE [None]
  - INJECTION SITE HAEMATOMA [None]
